FAERS Safety Report 24049029 (Version 1)
Quarter: 2024Q3

REPORT INFORMATION
  Report Type: Spontaneous
  Country: US (occurrence: US)
  Receive Date: 20240704
  Receipt Date: 20240704
  Transmission Date: 20241017
  Serious: No
  Sender: BLUEPRINT MEDICINES
  Company Number: US-Blueprint Medicines Corporation-4044

PATIENT
  Sex: Male

DRUGS (2)
  1. AYVAKIT [Suspect]
     Active Substance: AVAPRITINIB
     Indication: Gastrointestinal stromal tumour
     Route: 065
  2. UNSPECIFIED INGREDIENT [Suspect]
     Active Substance: UNSPECIFIED INGREDIENT
     Indication: Product used for unknown indication
     Route: 065

REACTIONS (9)
  - Otitis media acute [Unknown]
  - Tympanic membrane perforation [Unknown]
  - Malaise [Unknown]
  - Lacrimation increased [Unknown]
  - Eye discharge [Unknown]
  - Hordeolum [Unknown]
  - Eyelid disorder [Unknown]
  - Abdominal discomfort [Unknown]
  - Product dose omission issue [Unknown]
